FAERS Safety Report 8825231 (Version 3)
Quarter: 2013Q1

REPORT INFORMATION
  Report Type: Spontaneous
  Country: FR (occurrence: FR)
  Receive Date: 20121004
  Receipt Date: 20130104
  Transmission Date: 20140127
  Serious: Yes (Other)
  Sender: FDA-Public Use
  Company Number: FR-TEVA-362213ISR

PATIENT
  Age: 60 Year
  Sex: Male

DRUGS (14)
  1. ETOPOSIDE [Suspect]
     Indication: ACUTE PROMYELOCYTIC LEUKAEMIA
  2. MITOXANTRONE [Suspect]
     Indication: ACUTE PROMYELOCYTIC LEUKAEMIA
  3. METHOTREXATE [Suspect]
     Indication: ACUTE PROMYELOCYTIC LEUKAEMIA
  4. DAUNORUBICIN [Suspect]
     Indication: ACUTE PROMYELOCYTIC LEUKAEMIA
  5. CYTARABINE [Suspect]
     Indication: ACUTE PROMYELOCYTIC LEUKAEMIA
  6. RETINOIC ACID [Suspect]
     Indication: ACUTE PROMYELOCYTIC LEUKAEMIA
  7. PURINETHOL [Suspect]
     Indication: ACUTE PROMYELOCYTIC LEUKAEMIA
  8. MECHLORETHAMINE [Concomitant]
     Indication: HODGKIN^S DISEASE
  9. VINCRISTIN [Concomitant]
     Indication: HODGKIN^S DISEASE
  10. PROCARBAZINE [Concomitant]
     Indication: HODGKIN^S DISEASE
  11. PREDNISONE [Concomitant]
     Indication: HODGKIN^S DISEASE
  12. DOXORUBICIN [Concomitant]
     Indication: HODGKIN^S DISEASE
  13. BLEOMYCIN [Concomitant]
     Indication: HODGKIN^S DISEASE
  14. VINBLASTINE [Concomitant]
     Indication: HODGKIN^S DISEASE

REACTIONS (1)
  - Hodgkin^s disease [Recovered/Resolved]
